FAERS Safety Report 6618510-5 (Version None)
Quarter: 2010Q1

REPORT INFORMATION
  Report Type: 
  Country: None (occurrence: None)
  Receive Date: 20100308
  Receipt Date: 20100225
  Transmission Date: 20100710
  Serious: Yes (Hospitalization, Other)
  Sender: FDA-Public Use
  Company Number: NO-ELI_LILLY_AND_COMPANY-NO201003000305

PATIENT
  Sex: Female

DRUGS (1)
  1. HUMATROPE [Suspect]
     Indication: GROWTH RETARDATION
     Dosage: 0.6 MG, UNKNOWN
     Route: 040
     Dates: start: 20030301, end: 20091201

REACTIONS (1)
  - HEPATIC NEOPLASM MALIGNANT [None]
